FAERS Safety Report 11195499 (Version 1)
Quarter: 2015Q2

REPORT INFORMATION
  Report Type: Spontaneous
  Country: US (occurrence: None)
  Receive Date: 20150615
  Receipt Date: 20150615
  Transmission Date: 20150821
  Serious: Yes (Other)
  Sender: FDA-Public Use
  Company Number: None

PATIENT
  Age: 57 Year
  Sex: Female
  Weight: 78.93 kg

DRUGS (7)
  1. TYLENOL [Concomitant]
     Active Substance: ACETAMINOPHEN
  2. PAPAYA. [Concomitant]
     Active Substance: PAPAYA
  3. CALTRATE [Concomitant]
     Active Substance: CALCIUM CARBONATE
  4. PROPANOLOL ER [Concomitant]
  5. PROBIOTICS [Concomitant]
     Active Substance: PROBIOTICS NOS
  6. CLOPIDOGREL [Suspect]
     Active Substance: CLOPIDOGREL BISULFATE
     Indication: STENT PLACEMENT
     Dosage: 1ST BOTTLE HEART CENTER PHARMACY HUNTSVILLE AL. 2ND BOTTLE RITE AID PHARMACY HARTSELLE AL
     Route: 048
     Dates: start: 20150330, end: 20150511
  7. LEVOTHROXINE [Concomitant]

REACTIONS (3)
  - Frustration [None]
  - Ageusia [None]
  - Dysgeusia [None]

NARRATIVE: CASE EVENT DATE: 20150501
